FAERS Safety Report 16107811 (Version 1)
Quarter: 2019Q1

REPORT INFORMATION
  Report Type: Spontaneous
  Country: FR (occurrence: FR)
  Receive Date: 20190322
  Receipt Date: 20190322
  Transmission Date: 20190418
  Serious: Yes (Other)
  Sender: FDA-Public Use
  Company Number: FR-ELI_LILLY_AND_COMPANY-FR201903009564

PATIENT
  Age: 73 Year
  Sex: Male

DRUGS (4)
  1. BACTRIM [Suspect]
     Active Substance: SULFAMETHOXAZOLE\TRIMETHOPRIM
     Indication: PROPHYLAXIS
     Dosage: 1 DOSAGE FORM, DAILY
     Route: 048
     Dates: start: 20190205, end: 20190218
  2. RIMACTANE [Suspect]
     Active Substance: RIFAMPIN
     Indication: OSTEITIS
     Dosage: 300 MG, EVERY THREE DAYS
     Route: 048
     Dates: start: 20190208, end: 20190221
  3. FUCIDINE [FUSIDATE SODIUM] [Suspect]
     Active Substance: FUSIDATE SODIUM
     Indication: OSTEITIS
     Dosage: 500 MG, EVERY THREE DAYS
     Route: 048
     Dates: start: 20190208, end: 20190221
  4. CYMBALTA [Suspect]
     Active Substance: DULOXETINE HYDROCHLORIDE
     Indication: DEPRESSION
     Route: 048
     Dates: start: 20190204, end: 20190222

REACTIONS (3)
  - Jaundice [Recovering/Resolving]
  - Gamma-glutamyltransferase increased [Recovering/Resolving]
  - Hyperbilirubinaemia [Recovering/Resolving]

NARRATIVE: CASE EVENT DATE: 20190211
